FAERS Safety Report 10193864 (Version 1)
Quarter: 2014Q2

REPORT INFORMATION
  Report Type: Spontaneous
  Country: US (occurrence: US)
  Receive Date: 20140524
  Receipt Date: 20140524
  Transmission Date: 20141212
  Serious: No
  Sender: FDA-Public Use
  Company Number: US-SANOFI-AVENTIS-2013SA071525

PATIENT
  Age: 87 Year
  Sex: Male
  Weight: 85.27 kg

DRUGS (2)
  1. LANTUS SOLOSTAR [Suspect]
     Indication: TYPE 2 DIABETES MELLITUS
     Dosage: PRODUCT STRATED ONE YEAR AGO. DOSE:27 UNIT(S)
     Route: 051
     Dates: start: 20130424
  2. SOLOSTAR [Concomitant]
     Indication: TYPE 1 DIABETES MELLITUS
     Dosage: PRODUCT STRATED ONE YEAR AGO.

REACTIONS (3)
  - Tremor [Unknown]
  - Blood glucose increased [Unknown]
  - Incorrect product storage [Unknown]
